FAERS Safety Report 5237117-8 (Version None)
Quarter: 2007Q1

REPORT INFORMATION
  Report Type: 
  Country: None (occurrence: None)
  Receive Date: 20070209
  Receipt Date: 20070201
  Transmission Date: 20070707
  Serious: Yes (Hospitalization)
  Sender: FDA-Public Use
  Company Number: 163-21880-06111162

PATIENT
  Age: 62 Year
  Sex: Male

DRUGS (14)
  1. REVLIMID [Suspect]
     Indication: CHRONIC LYMPHOCYTIC LEUKAEMIA
     Dosage: 15 MG, DAILY, ORAL
     Route: 048
     Dates: end: 20061106
  2. REVLIMID [Suspect]
     Indication: CHRONIC LYMPHOCYTIC LEUKAEMIA
     Dosage: 15 MG, DAILY, ORAL
     Route: 048
     Dates: start: 20070129
  3. RITUXIMAB (RITUXIMAB) [Suspect]
     Indication: CHRONIC LYMPHOCYTIC LEUKAEMIA
  4. G-CSF (GRANULOCYTE COLONY STIMULATING FACTOR) [Concomitant]
  5. LEVAQUIN [Concomitant]
  6. TUMS (CALCIUM CARBONATE) [Concomitant]
  7. CALCIUM GLUCONATE [Concomitant]
  8. RED BLOOD CELLS [Concomitant]
  9. LASIX [Concomitant]
  10. K-DUR 10 [Concomitant]
  11. METFORMIN HCL [Concomitant]
  12. ROBITUSSIN AC [Concomitant]
  13. COLACE (DOCUSATE SODIUM) [Concomitant]
  14. SENOKOT S (SENOKOT-S) [Concomitant]

REACTIONS (17)
  - ASPARTATE AMINOTRANSFERASE INCREASED [None]
  - ATELECTASIS [None]
  - BLOOD CHLORIDE DECREASED [None]
  - BLOOD LACTATE DEHYDROGENASE INCREASED [None]
  - COLLAPSE OF LUNG [None]
  - FLUID OVERLOAD [None]
  - HYPERBILIRUBINAEMIA [None]
  - HYPERGLYCAEMIA [None]
  - LABORATORY TEST ABNORMAL [None]
  - LYMPHADENOPATHY [None]
  - OEDEMA PERIPHERAL [None]
  - PLEURAL EFFUSION [None]
  - PNEUMONIA [None]
  - PROTEIN TOTAL DECREASED [None]
  - PSEUDOMONAL BACTERAEMIA [None]
  - PULMONARY EMBOLISM [None]
  - PULMONARY OEDEMA [None]
